FAERS Safety Report 15575639 (Version 1)
Quarter: 2018Q4

REPORT INFORMATION
  Report Type: Spontaneous
  Country: US (occurrence: US)
  Receive Date: 20181101
  Receipt Date: 20181101
  Transmission Date: 20190205
  Serious: No
  Sender: FDA-Public Use
  Company Number: US-BAUSCH-BL-2018-028969

PATIENT
  Sex: Female

DRUGS (2)
  1. LUMIFY [Suspect]
     Active Substance: BRIMONIDINE TARTRATE
     Indication: OCULAR HYPERAEMIA
     Route: 047
  2. OPCON-A ITCHING AND REDNESS RELIEVER EYE DROPS [Concomitant]
     Indication: HYPERSENSITIVITY
     Route: 047

REACTIONS (1)
  - Drug ineffective [Not Recovered/Not Resolved]
